FAERS Safety Report 17946044 (Version 11)
Quarter: 2022Q2

REPORT INFORMATION
  Report Type: Other
  Country: CA (occurrence: None)
  Receive Date: 20200626
  Receipt Date: 20220616
  Transmission Date: 20220721
  Serious: Yes (Other)
  Sender: FDA-Public Use
  Company Number: CA-ROCHE-2528156

PATIENT
  Sex: Female

DRUGS (7)
  1. OCREVUS [Suspect]
     Active Substance: OCRELIZUMAB
     Indication: Relapsing-remitting multiple sclerosis
     Route: 042
     Dates: start: 20180719
  2. OCREVUS [Suspect]
     Active Substance: OCRELIZUMAB
     Route: 042
  3. MYRBETRIQ [Suspect]
     Active Substance: MIRABEGRON
     Indication: Product used for unknown indication
     Dosage: STOPPED
     Route: 065
     Dates: start: 202001
  4. GABAPENTIN [Concomitant]
     Active Substance: GABAPENTIN
     Dates: start: 2019
  5. SOLIFENACIN [Concomitant]
     Active Substance: SOLIFENACIN
  6. BACLOFEN [Concomitant]
     Active Substance: BACLOFEN
  7. OTEZLA [Concomitant]
     Active Substance: APREMILAST
     Indication: Psoriasis

REACTIONS (11)
  - Psoriasis [Not Recovered/Not Resolved]
  - Urinary retention [Not Recovered/Not Resolved]
  - Menstruation irregular [Not Recovered/Not Resolved]
  - Therapeutic response shortened [Unknown]
  - Muscular weakness [Unknown]
  - Hypoaesthesia [Unknown]
  - Muscle spasms [Unknown]
  - Cystitis [Unknown]
  - Nightmare [Recovered/Resolved]
  - Micturition urgency [Not Recovered/Not Resolved]
  - Mobility decreased [Not Recovered/Not Resolved]
